FAERS Safety Report 13273231 (Version 1)
Quarter: 2017Q1

REPORT INFORMATION
  Report Type: Spontaneous
  Country: US (occurrence: US)
  Receive Date: 20170227
  Receipt Date: 20170227
  Transmission Date: 20170428
  Serious: Yes (Hospitalization, Other)
  Sender: FDA-Public Use
  Company Number: None

PATIENT
  Age: 33 Year
  Weight: 86.85 kg

DRUGS (7)
  1. IRON [Concomitant]
     Active Substance: IRON
  2. ENTYVIO [Suspect]
     Active Substance: VEDOLIZUMAB
     Indication: COLITIS ULCERATIVE
     Dosage: ?          OTHER FREQUENCY:EVERY 8 WEEKS;?
     Route: 042
     Dates: start: 20160901, end: 20170224
  3. PROGESTERONE. [Concomitant]
     Active Substance: PROGESTERONE
  4. VITAMIN B12 [Concomitant]
     Active Substance: CYANOCOBALAMIN
  5. BIOTIN [Concomitant]
     Active Substance: BIOTIN
  6. VITAMON D [Concomitant]
  7. PROBIOTIC [Concomitant]
     Active Substance: PROBIOTICS NOS

REACTIONS (3)
  - Dyspnoea [None]
  - Palpitations [None]
  - Hypertension [None]

NARRATIVE: CASE EVENT DATE: 20170224
